FAERS Safety Report 24997637 (Version 2)
Quarter: 2025Q1

REPORT INFORMATION
  Report Type: Report from Study
  Country: AU (occurrence: AU)
  Receive Date: 20250222
  Receipt Date: 20250227
  Transmission Date: 20250409
  Serious: Yes (Hospitalization, Other)
  Sender: ALEXION PHARMACEUTICALS
  Company Number: AU-AstraZeneca-CH-00811467A

PATIENT
  Age: 46 Year

DRUGS (2)
  1. ACALABRUTINIB [Suspect]
     Active Substance: ACALABRUTINIB
     Indication: Chronic lymphocytic leukaemia
     Route: 065
  2. VENETOCLAX [Concomitant]
     Active Substance: VENETOCLAX
     Route: 065

REACTIONS (9)
  - Mental impairment [Unknown]
  - Infection [Unknown]
  - Hepatic function abnormal [Unknown]
  - Malaise [Unknown]
  - Full blood count decreased [Unknown]
  - Immune system disorder [Unknown]
  - Illness [Unknown]
  - Adverse drug reaction [Unknown]
  - Quality of life decreased [Unknown]
